FAERS Safety Report 22749935 (Version 2)
Quarter: 2023Q4

REPORT INFORMATION
  Report Type: Spontaneous
  Country: ES (occurrence: ES)
  Receive Date: 20230726
  Receipt Date: 20231204
  Transmission Date: 20240109
  Serious: Yes (Other)
  Sender: FDA-Public Use
  Company Number: None

PATIENT

DRUGS (13)
  1. DOXYCYCLINE [Suspect]
     Active Substance: DOXYCYCLINE
     Indication: Alopecia scarring
     Dosage: 1 DOSAGE FORM
     Route: 065
  2. CLOBETASOL PROPIONATE [Suspect]
     Active Substance: CLOBETASOL PROPIONATE
     Indication: Alopecia scarring
     Dosage: 1 DOSAGE FORM
     Route: 061
  3. TRIAMCINOLONE [Concomitant]
     Active Substance: TRIAMCINOLONE
     Indication: Alopecia scarring
     Route: 065
  4. CLINDAMYCIN [Concomitant]
     Active Substance: CLINDAMYCIN
     Indication: Alopecia scarring
     Route: 065
  5. RIFAMPIN [Concomitant]
     Active Substance: RIFAMPIN
     Indication: Alopecia scarring
     Route: 065
  6. ISOTRETINOIN [Concomitant]
     Active Substance: ISOTRETINOIN
     Indication: Alopecia scarring
     Route: 065
  7. DAPSONE [Concomitant]
     Active Substance: DAPSONE
     Indication: Alopecia scarring
     Dosage: UNK
     Route: 048
  8. IXEKIZUMAB [Concomitant]
     Active Substance: IXEKIZUMAB
     Indication: Alopecia scarring
     Dosage: 80 MILLIGRAM, FROM THE 16 WEEKS
     Route: 058
  9. IXEKIZUMAB [Concomitant]
     Active Substance: IXEKIZUMAB
     Dosage: 80 MILLIGRAM, AT WEEK TWO, FOUR, SIX, EIGHT, TEN, TWELVE
     Route: 058
  10. IXEKIZUMAB [Concomitant]
     Active Substance: IXEKIZUMAB
     Dosage: 160 MILLIGRAM, AT WEEK ZERO
     Route: 058
  11. ADALIMUMAB [Concomitant]
     Active Substance: ADALIMUMAB\ISOPROPYL ALCOHOL
     Indication: Alopecia scarring
     Dosage: 160 MILLIGRAM, WEEK ZERO
     Route: 058
  12. ADALIMUMAB [Concomitant]
     Active Substance: ADALIMUMAB\ISOPROPYL ALCOHOL
     Dosage: 80 MILLIGRAM, WEEK TWO
     Route: 058
  13. ADALIMUMAB [Concomitant]
     Active Substance: ADALIMUMAB\ISOPROPYL ALCOHOL
     Dosage: 40 MILLIGRAM, BIW
     Route: 058

REACTIONS (6)
  - Condition aggravated [Unknown]
  - Paradoxical drug reaction [Recovered/Resolved]
  - Skin candida [Unknown]
  - Alopecia scarring [Recovering/Resolving]
  - Intentional product use issue [Recovered/Resolved]
  - Drug ineffective for unapproved indication [Recovered/Resolved]
